FAERS Safety Report 11864605 (Version 2)
Quarter: 2016Q1

REPORT INFORMATION
  Report Type: Spontaneous
  Country: BR (occurrence: BR)
  Receive Date: 20151223
  Receipt Date: 20160112
  Transmission Date: 20160526
  Serious: Yes (Hospitalization, Other)
  Sender: FDA-Public Use
  Company Number: BR-TAKEDA-2015TUS018424

PATIENT
  Age: 55 Year
  Sex: Female
  Weight: 94 kg

DRUGS (16)
  1. INSULIN REGULAR                    /01223201/ [Concomitant]
     Active Substance: INSULIN BEEF
     Indication: DIABETES MELLITUS
     Dosage: UNK, TID
     Route: 058
     Dates: start: 1990
  2. METFORMIN [Concomitant]
     Active Substance: METFORMIN HYDROCHLORIDE
     Indication: DIABETES MELLITUS
     Dosage: 850 MG, TID
     Route: 048
  3. SUSTRATE [Concomitant]
     Active Substance: PROPATYL NITRATE
     Indication: ISCHAEMIC HEART DISEASE PROPHYLAXIS
     Dosage: UNK, TID
     Route: 048
     Dates: start: 201510
  4. AZOPT [Concomitant]
     Active Substance: BRINZOLAMIDE
     Indication: GLAUCOMA
     Dosage: 1 GTT, BID
     Route: 047
     Dates: start: 201504
  5. INSULINE NPH [Concomitant]
     Active Substance: INSULIN PORK\INSULIN PURIFIED PORK
     Indication: DIABETES MELLITUS
     Dosage: UNK UNK, TID
     Route: 058
     Dates: start: 1990
  6. CLOPIN                             /00332101/ [Concomitant]
     Indication: ISCHAEMIC HEART DISEASE PROPHYLAXIS
     Dosage: UNK
     Route: 048
     Dates: start: 201510
  7. CARVEDILOL. [Concomitant]
     Active Substance: CARVEDILOL
     Indication: ISCHAEMIC HEART DISEASE PROPHYLAXIS
     Dosage: 3.125 MG, UNK
     Route: 048
     Dates: start: 201510
  8. SIMVASTATIN. [Concomitant]
     Active Substance: SIMVASTATIN
     Indication: HYPERCHOLESTEROLAEMIA
     Dosage: 20 MG, QD
     Route: 048
  9. AAS [Concomitant]
     Active Substance: ASPIRIN
     Indication: ISCHAEMIC HEART DISEASE PROPHYLAXIS
     Dosage: 100 MG, QD
     Route: 048
     Dates: start: 2000
  10. OMEPRAZOLE. [Concomitant]
     Active Substance: OMEPRAZOLE
     Indication: GASTRITIS EROSIVE
     Dosage: UNK, QD
     Route: 048
     Dates: start: 2000
  11. DOSE D [Concomitant]
     Indication: VITAMIN D DEFICIENCY
     Dosage: UNK
     Route: 048
  12. LACRIFILM [Concomitant]
     Active Substance: CARBOXYMETHYLCELLULOSE SODIUM
     Indication: EYE LUBRICATION THERAPY
     Dosage: 2 GTT, BID
     Route: 047
     Dates: start: 201504
  13. LOSARTAN. [Concomitant]
     Active Substance: LOSARTAN
     Indication: HYPERTENSION
     Dosage: 50 MG, BID
     Route: 048
  14. NESINA [Suspect]
     Active Substance: ALOGLIPTIN BENZOATE
     Indication: DIABETES MELLITUS
     Dosage: 25 MG, QD
     Route: 048
     Dates: start: 201508
  15. FUROSEMIDE. [Concomitant]
     Active Substance: FUROSEMIDE
     Indication: FLUID RETENTION
     Dosage: 40 MG, QD
     Route: 048
     Dates: start: 2014
  16. AESCULUS HIPPOCASTANUM [Concomitant]
     Active Substance: UNSPECIFIED INGREDIENT
     Indication: CARDIOVASCULAR INSUFFICIENCY
     Dosage: UNK, QD
     Route: 048

REACTIONS (2)
  - Myocardial infarction [Recovered/Resolved]
  - Hypoglycaemia [Recovered/Resolved]

NARRATIVE: CASE EVENT DATE: 201510
